FAERS Safety Report 20533026 (Version 2)
Quarter: 2022Q3

REPORT INFORMATION
  Report Type: Report from Study
  Country: US (occurrence: US)
  Receive Date: 20220301
  Receipt Date: 20220916
  Transmission Date: 20221027
  Serious: Yes (Hospitalization)
  Sender: FDA-Public Use
  Company Number: US-OTSUKA-2021_038532

PATIENT
  Sex: Female

DRUGS (2)
  1. CEDAZURIDINE\DECITABINE [Suspect]
     Active Substance: CEDAZURIDINE\DECITABINE
     Indication: Myelodysplastic syndrome
     Dosage: 135MG (35 MG DECITABINE AND 100 MG CEDAZURIDINE), QD 1-3 DAYS EVERY 28 DAY CYCLE
     Route: 065
  2. CEDAZURIDINE\DECITABINE [Suspect]
     Active Substance: CEDAZURIDINE\DECITABINE
     Dosage: 135MG (35 MG DECITABINE AND 100 MG CEDAZURIDINE), QD (DAILY ON AN EMPTY STOMACH 2 HOURS BEFORE OR AF
     Route: 048

REACTIONS (3)
  - Abdominal infection [Recovering/Resolving]
  - Small intestinal perforation [Recovering/Resolving]
  - Off label use [Unknown]
